APPROVED DRUG PRODUCT: SITAGLIPTIN AND METFORMIN HYDROCHLORIDE
Active Ingredient: METFORMIN HYDROCHLORIDE; SITAGLIPTIN PHOSPHATE
Strength: 1GM;EQ 100MG BASE
Dosage Form/Route: TABLET, EXTENDED RELEASE;ORAL
Application: A204144 | Product #003
Applicant: PH HEALTH LTD
Approved: Jun 4, 2025 | RLD: No | RS: No | Type: DISCN